FAERS Safety Report 21657114 (Version 1)
Quarter: 2022Q4

REPORT INFORMATION
  Report Type: Spontaneous
  Country: IN (occurrence: IN)
  Receive Date: 20221129
  Receipt Date: 20221129
  Transmission Date: 20230113
  Serious: Yes (Hospitalization)
  Sender: FDA-Public Use
  Company Number: IN-MYLANLABS-2022M1132926

PATIENT
  Age: 63 Year
  Sex: Female

DRUGS (2)
  1. MYCOPHENOLATE MOFETIL [Suspect]
     Active Substance: MYCOPHENOLATE MOFETIL
     Indication: Immunosuppressant drug therapy
     Dosage: UNK
     Route: 065
  2. PREDNISOLONE [Suspect]
     Active Substance: PREDNISOLONE
     Indication: Immunosuppressant drug therapy
     Dosage: 10 MILLIGRAM, QD
     Route: 065

REACTIONS (9)
  - Pelvi-ureteric obstruction [Recovering/Resolving]
  - Hyponatraemia [Unknown]
  - Hydronephrosis [Unknown]
  - BK virus infection [Recovering/Resolving]
  - Polyomavirus-associated nephropathy [Recovered/Resolved]
  - Transplant dysfunction [Unknown]
  - Swelling face [Unknown]
  - Oedema peripheral [Unknown]
  - Leukopenia [Unknown]
